FAERS Safety Report 7841855-8 (Version None)
Quarter: 2011Q4

REPORT INFORMATION
  Report Type: 
  Country: None (occurrence: None)
  Receive Date: 20111024
  Receipt Date: 20111024
  Transmission Date: 20120403
  Serious: No
  Sender: FDA-Public Use
  Company Number: None

PATIENT
  Sex: Female
  Weight: 54.4316 kg

DRUGS (1)
  1. VITAMIN D [Suspect]
     Indication: VITAMIN D DECREASED
     Dosage: A PILL A WEEK 1 PILL A WEEK;  I TOOK SIX OF THE PILLS
     Dates: start: 20111015

REACTIONS (5)
  - ABDOMINAL PAIN UPPER [None]
  - FLANK PAIN [None]
  - CONSTIPATION [None]
  - UNEVALUABLE EVENT [None]
  - CHEST PAIN [None]
